FAERS Safety Report 5036001-2 (Version None)
Quarter: 2006Q2

REPORT INFORMATION
  Report Type: 
  Country: None (occurrence: None)
  Receive Date: 20060526
  Receipt Date: 20060202
  Transmission Date: 20061013
  Serious: No
  Sender: FDA-Public Use
  Company Number: 220786

PATIENT
  Sex: Female

DRUGS (4)
  1. RAPTIVA [Suspect]
     Indication: PSORIASIS
     Dates: start: 20050101
  2. IBUPROFEN [Concomitant]
  3. NAPROSYN [Concomitant]
  4. BENADRYL [Concomitant]

REACTIONS (1)
  - PSORIASIS [None]
